FAERS Safety Report 14508513 (Version 2)
Quarter: 2018Q1

REPORT INFORMATION
  Report Type: Spontaneous
  Country: US (occurrence: US)
  Receive Date: 20180209
  Receipt Date: 20180322
  Transmission Date: 20180509
  Serious: Yes (Other)
  Sender: FDA-Public Use
  Company Number: US-AMGEN-USASP2018016627

PATIENT
  Age: 47 Year
  Sex: Female
  Weight: 57.14 kg

DRUGS (13)
  1. CELECOXIB. [Concomitant]
     Active Substance: CELECOXIB
     Dosage: 200 MG, BID AS NEEDED
     Route: 048
  2. HUMIRA [Concomitant]
     Active Substance: ADALIMUMAB
     Indication: RHEUMATOID ARTHRITIS
     Dosage: 40 MG, Q2WK (INJECT 0.8 MILLILITER BY SUBCUTANEOUS ROUTE EVERY 2 WEEKS)
     Route: 058
     Dates: end: 20171013
  3. PREDNISONE. [Concomitant]
     Active Substance: PREDNISONE
     Dosage: 1 MG TABLET (TAKE 2 TABLET BY ORAL ROUTE EVERY DAY)
     Route: 048
  4. SUMATRIPTAN. [Concomitant]
     Active Substance: SUMATRIPTAN
     Indication: MIGRAINE
     Dosage: 25 MG TABLET AFTER ONSET OF MIGRAINE; MAY REPEAT AFTER 2 HOURS IF HEADACHE RETURNS,NOT TO EXCEED 200
     Route: 048
  5. CITALOPRAM [Concomitant]
     Active Substance: CITALOPRAM HYDROBROMIDE
     Dosage: 20 MG, QD
     Route: 048
  6. FOLIC ACID. [Concomitant]
     Active Substance: FOLIC ACID
     Dosage: 1 MG, QD
     Route: 048
  7. PREDNISONE. [Concomitant]
     Active Substance: PREDNISONE
     Dosage: 5 MG TABLET (TAKE I TABLET BY ORAL ROUTE EVERY DAY; TOTAL DAILY DOSE 7MG DAILY)
     Route: 048
  8. METHOTREXATE SODIUM. [Concomitant]
     Active Substance: METHOTREXATE SODIUM
     Dosage: 2.5 MG TABLET (7 TABLETS EVERY WEEK)
     Route: 048
  9. TYLENOL WITH CODEINE [Concomitant]
     Active Substance: ACETAMINOPHEN\CODEINE PHOSPHATE
     Dosage: #4 300 MG-60 RNG TABLET, TAKE 1 TABLET BY ORAL ROUTE EVERY 6 HOURS AS NEEDED
     Route: 048
  10. TOCILIZUMAB. [Concomitant]
     Active Substance: TOCILIZUMAB
     Dosage: UNK
  11. TRI-SPRINTEC [Concomitant]
     Active Substance: ETHINYL ESTRADIOL\NORGESTIMATE
     Dosage: (28) 0.18 MG(7)/0,215 MG(7)/0.25MG(7)-35 MCG TABLET, TAKE 1 TABLET BY ORAL ROUTE EVERY DAY
     Route: 048
  12. ENBREL [Suspect]
     Active Substance: ETANERCEPT
     Indication: PRODUCT USED FOR UNKNOWN INDICATION
     Dosage: UNK
     Route: 065
  13. MECLIZINE [Concomitant]
     Active Substance: MECLIZINE HYDROCHLORIDE
     Dosage: 25 MG TABLET 4 TIMES EVERY DAY AS NEEDED
     Route: 048

REACTIONS (2)
  - Maternal exposure during pregnancy [Recovered/Resolved]
  - Abortion spontaneous [Recovered/Resolved]
